FAERS Safety Report 9752285 (Version 1)
Quarter: 2013Q4

REPORT INFORMATION
  Report Type: Spontaneous
  Country: US (occurrence: None)
  Receive Date: 20131212
  Receipt Date: 20131212
  Transmission Date: 20140711
  Serious: Yes (Life-Threatening, Hospitalization, Other)
  Sender: FDA-Public Use
  Company Number: None

PATIENT
  Age: 8 Year
  Sex: Male
  Weight: 33.11 kg

DRUGS (1)
  1. GAMUNEX C [Suspect]
     Indication: IMMUNODEFICIENCY
     Dosage: MONTHLY INTO A VEIN
     Dates: start: 20131205, end: 20131205

REACTIONS (1)
  - Meningitis aseptic [None]
